FAERS Safety Report 7773568-5 (Version None)
Quarter: 2011Q3

REPORT INFORMATION
  Report Type: 
  Country: None (occurrence: None)
  Receive Date: 20110923
  Receipt Date: 20110913
  Transmission Date: 20111222
  Serious: Yes (Other)
  Sender: FDA-Public Use
  Company Number: PK-PAR PHARMACEUTICAL, INC-2011SCPR003229

PATIENT

DRUGS (10)
  1. SERTRALINE HYDROCHLORIDE [Suspect]
     Dosage: 100 MG/DAY
  2. MIANSERIN [Suspect]
     Indication: INSOMNIA
     Dosage: UNK, UNKNOWN
     Route: 065
     Dates: end: 20080101
  3. QUETIAPINE [Suspect]
     Indication: INSOMNIA
     Dosage: 100 MG/DAY
     Route: 065
     Dates: end: 20080401
  4. RISPERIDONE [Suspect]
     Dosage: 0.5 MG/DAY
     Route: 065
  5. SERTRALINE HYDROCHLORIDE [Suspect]
     Dosage: 100 MG/DAY, REDUCED AFTER RISPERIDONE INTRODUCTION
  6. PROPRANOLOL [Concomitant]
     Indication: DEPRESSIVE SYMPTOM
     Dosage: 30 MG/DAY
     Route: 065
  7. RISPERIDONE [Suspect]
     Indication: INSOMNIA
     Dosage: 1 MG/DAY
     Route: 065
     Dates: start: 20080101
  8. RISPERIDONE [Suspect]
     Dosage: 1 MG/DAY REINTRODUCED
     Route: 065
  9. RISPERIDONE [Suspect]
     Dosage: 1 MG/DAY
     Route: 065
  10. SERTRALINE HYDROCHLORIDE [Suspect]
     Indication: DEPRESSIVE SYMPTOM
     Dosage: 50 MG/DAY
     Route: 065

REACTIONS (2)
  - RESPIRATORY DYSKINESIA [None]
  - EXTRAPYRAMIDAL DISORDER [None]
